FAERS Safety Report 6380700-7 (Version None)
Quarter: 2009Q3

REPORT INFORMATION
  Report Type: 
  Country: None (occurrence: None)
  Receive Date: 20090929
  Receipt Date: 20090921
  Transmission Date: 20100115
  Serious: Yes (Hospitalization)
  Sender: FDA-Public Use
  Company Number: CA-KINGPHARMUSA00001-K200901169

PATIENT
  Age: 24 Year
  Sex: Female

DRUGS (1)
  1. EPIPEN [Suspect]
     Indication: ANAPHYLACTIC REACTION
     Dosage: 5 MG, SINGLE
     Route: 030

REACTIONS (13)
  - ACCIDENTAL OVERDOSE [None]
  - ANURIA [None]
  - CHEST PAIN [None]
  - HYPERTENSION [None]
  - NAUSEA [None]
  - PALLOR [None]
  - PALPITATIONS [None]
  - PERIPHERAL COLDNESS [None]
  - SHOCK [None]
  - STRESS CARDIOMYOPATHY [None]
  - TACHYCARDIA [None]
  - TREMOR [None]
  - VOMITING [None]
